FAERS Safety Report 5251994-6 (Version None)
Quarter: 2007Q1

REPORT INFORMATION
  Report Type: 
  Country: None (occurrence: None)
  Receive Date: 20070223
  Receipt Date: 20070212
  Transmission Date: 20070707
  Serious: Yes (Hospitalization, Other)
  Sender: FDA-Public Use
  Company Number: SPV1-2007-00703

PATIENT
  Age: 55 Year
  Sex: Female

DRUGS (4)
  1. ADDERALL 10 [Suspect]
     Indication: ATTENTION DEFICIT/HYPERACTIVITY DISORDER
     Dosage: 45 MG, 1X/DAY:QD, ORAL
     Route: 048
     Dates: start: 20010101
  2. ASTELIN /00085801/ (DIPROPHYLLINE) [Concomitant]
  3. ZOLOFT [Concomitant]
  4. XANAX [Concomitant]

REACTIONS (8)
  - CERVICOBRACHIAL SYNDROME [None]
  - CONVULSION [None]
  - FALL [None]
  - FIBROMYALGIA [None]
  - HAND DEFORMITY [None]
  - JOINT SWELLING [None]
  - STOMACH DISCOMFORT [None]
  - VERTEBROBASILAR INSUFFICIENCY [None]
